FAERS Safety Report 12501384 (Version 4)
Quarter: 2016Q3

REPORT INFORMATION
  Report Type: Spontaneous
  Country: IT (occurrence: IT)
  Receive Date: 20160627
  Receipt Date: 20160812
  Transmission Date: 20161109
  Serious: Yes (Hospitalization, Other)
  Sender: FDA-Public Use
  Company Number: IT-PFIZER INC-2016316888

PATIENT
  Age: 59 Year
  Sex: Male

DRUGS (3)
  1. LEVETIRACETAM. [Suspect]
     Active Substance: LEVETIRACETAM
     Indication: PSYCHOTIC DISORDER
     Dosage: 1000 MG, DAILY
  2. VALPROATE SODIUM. [Suspect]
     Active Substance: VALPROATE SODIUM
     Indication: PSYCHOTIC DISORDER
     Dosage: 900 MG, DAILY
     Route: 048
  3. PAROXETINE. [Suspect]
     Active Substance: PAROXETINE
     Indication: MOOD ALTERED
     Dosage: 20 MG, DAILY
     Route: 048

REACTIONS (6)
  - Dysphonia [Recovering/Resolving]
  - Parkinsonism [Recovering/Resolving]
  - Gait disturbance [Recovering/Resolving]
  - Hyperreflexia [Recovering/Resolving]
  - Cerebral congestion [Recovering/Resolving]
  - Pleurothotonus [Recovering/Resolving]
